FAERS Safety Report 25573801 (Version 1)
Quarter: 2025Q3

REPORT INFORMATION
  Report Type: Report from Study
  Country: US (occurrence: US)
  Receive Date: 20250717
  Receipt Date: 20250717
  Transmission Date: 20251021
  Serious: Yes (Other)
  Sender: BAYER HEALTHCARE PHARMACEUTICALS INC.
  Company Number: US-BAYER-2025A090315

PATIENT
  Age: 70 Year
  Sex: Male

DRUGS (2)
  1. NUBEQA [Suspect]
     Active Substance: DAROLUTAMIDE
     Dosage: 300 MG, BID
     Route: 048
  2. NUBEQA [Suspect]
     Active Substance: DAROLUTAMIDE
     Dosage: 300 MG, BID
     Route: 048

REACTIONS (7)
  - Chest pain [Unknown]
  - Asthenia [Unknown]
  - Somatic symptom disorder [Unknown]
  - Pain [Unknown]
  - Dysuria [Unknown]
  - Product use issue [None]
  - Product dose omission issue [None]
